FAERS Safety Report 10356221 (Version 1)
Quarter: 2014Q3

REPORT INFORMATION
  Report Type: Spontaneous
  Country: FR (occurrence: FR)
  Receive Date: 20140801
  Receipt Date: 20140801
  Transmission Date: 20150326
  Serious: Yes (Death)
  Sender: FDA-Public Use
  Company Number: FR-ROCHE-1443898

PATIENT
  Age: 60 Year
  Sex: Male

DRUGS (3)
  1. FLUOROURACILE [Concomitant]
     Active Substance: FLUOROURACIL
     Indication: COLON CANCER METASTATIC
     Dosage: 10 COURSES
     Route: 041
     Dates: start: 20140109, end: 20140612
  2. CAMPTO [Concomitant]
     Active Substance: IRINOTECAN
     Indication: COLON CANCER METASTATIC
     Dosage: CYCLICAL, 10 COURSES
     Route: 065
     Dates: start: 20140109, end: 20140612
  3. AVASTIN [Suspect]
     Active Substance: BEVACIZUMAB
     Indication: COLON CANCER METASTATIC
     Route: 042
     Dates: start: 20140321, end: 20140612

REACTIONS (1)
  - Nephrotic syndrome [Fatal]

NARRATIVE: CASE EVENT DATE: 20140625
